FAERS Safety Report 6011957-X (Version None)
Quarter: 2008Q4

REPORT INFORMATION
  Report Type: 
  Country: None (occurrence: None)
  Receive Date: 20081218
  Receipt Date: 20081013
  Transmission Date: 20090506
  Serious: No
  Sender: FDA-Public Use
  Company Number: US-ASTRAZENECA-2008UW22559

PATIENT
  Sex: Male

DRUGS (1)
  1. CRESTOR [Suspect]
     Route: 048

REACTIONS (4)
  - GLAUCOMA [None]
  - NEUROPATHY PERIPHERAL [None]
  - PULMONARY FIBROSIS [None]
  - TYPE 2 DIABETES MELLITUS [None]
